FAERS Safety Report 6273026-3 (Version None)
Quarter: 2009Q3

REPORT INFORMATION
  Report Type: 
  Country: None (occurrence: None)
  Receive Date: 20090715
  Receipt Date: 20090715
  Transmission Date: 20100115
  Serious: No
  Sender: FDA-Public Use
  Company Number: None

PATIENT
  Age: 50 Year
  Sex: Female
  Weight: 61.6892 kg

DRUGS (1)
  1. ASTEPRO [Suspect]
     Indication: RHINITIS ALLERGIC
     Dosage: 2 SPRAYS EACH NOSTRIL TWO TIMES A DAY
     Dates: start: 20090622, end: 20090710

REACTIONS (6)
  - DRUG HYPERSENSITIVITY [None]
  - DRY EYE [None]
  - EYE IRRITATION [None]
  - EYE PAIN [None]
  - NASAL CYST [None]
  - NASAL DISCOMFORT [None]
